FAERS Safety Report 5924825-6 (Version None)
Quarter: 2008Q4

REPORT INFORMATION
  Report Type: 
  Country: None (occurrence: None)
  Receive Date: 20081020
  Receipt Date: 20081020
  Transmission Date: 20090506
  Serious: Yes (Hospitalization)
  Sender: FDA-Public Use
  Company Number: None

PATIENT
  Age: 57 Year
  Sex: Male
  Weight: 54.4316 kg

DRUGS (2)
  1. CARBOPLATIN [Suspect]
  2. ABRAXANE [Suspect]

REACTIONS (5)
  - BLOOD PRESSURE DECREASED [None]
  - CONFUSIONAL STATE [None]
  - DISORIENTATION [None]
  - THERAPEUTIC AGENT TOXICITY [None]
  - WEIGHT DECREASED [None]
